FAERS Safety Report 18887969 (Version 1)
Quarter: 2021Q1

REPORT INFORMATION
  Report Type: Spontaneous
  Country: US (occurrence: US)
  Receive Date: 20210212
  Receipt Date: 20210212
  Transmission Date: 20210420
  Serious: Yes (Other)
  Sender: FDA-Public Use
  Company Number: US-ASTRAZENECA-2021A049105

PATIENT

DRUGS (1)
  1. PRILOSEC OTC [Suspect]
     Active Substance: OMEPRAZOLE MAGNESIUM
     Route: 048
     Dates: start: 2012, end: 2017

REACTIONS (10)
  - Acute kidney injury [Unknown]
  - Pain [Unknown]
  - Tubulointerstitial nephritis [Unknown]
  - Hyperchlorhydria [Unknown]
  - Rebound effect [Unknown]
  - Renal transplant [Unknown]
  - End stage renal disease [Unknown]
  - Dialysis [Unknown]
  - Chronic kidney disease [Unknown]
  - Drug dependence [Unknown]
